FAERS Safety Report 4995562-X (Version None)
Quarter: 2006Q2

REPORT INFORMATION
  Report Type: 
  Country: None (occurrence: None)
  Receive Date: 20060508
  Receipt Date: 20050406
  Transmission Date: 20061013
  Serious: Yes (Hospitalization, Disabling)
  Sender: FDA-Public Use
  Company Number: US-ROCHE-401267

PATIENT
  Age: 28 Year
  Sex: Male
  Weight: 93 kg

DRUGS (3)
  1. ACCUTANE [Suspect]
     Route: 048
     Dates: start: 19990615, end: 20001215
  2. ACCUTANE [Suspect]
     Route: 048
     Dates: start: 20020208, end: 20020410
  3. ACCUTANE [Suspect]
     Route: 048
     Dates: start: 20020410, end: 20020815

REACTIONS (22)
  - ANAEMIA [None]
  - ANAL FISSURE [None]
  - BLOOD CHOLESTEROL INCREASED [None]
  - BLOOD PRESSURE INCREASED [None]
  - CHRONIC TONSILLITIS [None]
  - COLITIS [None]
  - COLITIS ULCERATIVE [None]
  - CONJUNCTIVITIS [None]
  - CROHN'S DISEASE [None]
  - DEAFNESS [None]
  - EPISTAXIS [None]
  - ERECTILE DYSFUNCTION [None]
  - GASTROINTESTINAL DISORDER [None]
  - INFLAMMATORY BOWEL DISEASE [None]
  - INGUINAL HERNIA [None]
  - INTESTINAL HAEMORRHAGE [None]
  - LOW DENSITY LIPOPROTEIN INCREASED [None]
  - MULTI-ORGAN DISORDER [None]
  - OTITIS MEDIA CHRONIC [None]
  - PAIN IN EXTREMITY [None]
  - RECTAL HAEMORRHAGE [None]
  - SLEEP APNOEA SYNDROME [None]
